FAERS Safety Report 24626951 (Version 1)
Quarter: 2024Q4

REPORT INFORMATION
  Report Type: Spontaneous
  Country: US (occurrence: US)
  Receive Date: 20241115
  Receipt Date: 20241115
  Transmission Date: 20250115
  Serious: Yes (Other)
  Sender: NOVO NORDISK
  Company Number: US-NOVOPROD-1254761

PATIENT
  Sex: Female

DRUGS (1)
  1. NOVOLOG [Suspect]
     Active Substance: INSULIN ASPART
     Indication: Type 1 diabetes mellitus
     Dosage: BASAL AND BOLUS/ CONTINUOUSLY OUT THE DAY, AS NEEDED
     Route: 058
     Dates: start: 202111

REACTIONS (4)
  - Blood glucose increased [Recovered/Resolved]
  - Drug ineffective [Unknown]
  - Product quality issue [Unknown]
  - Blood glucose increased [Recovered/Resolved]

NARRATIVE: CASE EVENT DATE: 20240626
